FAERS Safety Report 17574946 (Version 1)
Quarter: 2020Q1

REPORT INFORMATION
  Report Type: Report from Study
  Country: KR (occurrence: KR)
  Receive Date: 20200324
  Receipt Date: 20200324
  Transmission Date: 20200409
  Serious: Yes (Other)
  Sender: FDA-Public Use
  Company Number: KR-SUN PHARMACEUTICAL INDUSTRIES LTD-2020RR-241419

PATIENT
  Age: 24 Year
  Sex: Female

DRUGS (1)
  1. PARACETAMOL [Suspect]
     Active Substance: ACETAMINOPHEN
     Indication: PRODUCT USED FOR UNKNOWN INDICATION
     Dosage: APPROXIMATELY 153.8 MILLIGRAM/KILOGRAM IN 12H
     Route: 048

REACTIONS (5)
  - Nausea [Unknown]
  - Procalcitonin increased [Unknown]
  - Abdominal pain upper [Unknown]
  - Vomiting [Unknown]
  - Toxicity to various agents [Unknown]
